FAERS Safety Report 17537454 (Version 1)
Quarter: 2020Q1

REPORT INFORMATION
  Report Type: Spontaneous
  Country: US (occurrence: US)
  Receive Date: 20200312
  Receipt Date: 20200312
  Transmission Date: 20200409
  Serious: Yes (Life-Threatening, Hospitalization, Disabling, Other)
  Sender: FDA-Public Use
  Company Number: None

PATIENT
  Age: 61 Year
  Sex: Male
  Weight: 112.04 kg

DRUGS (7)
  1. CHROMIUM [Concomitant]
     Active Substance: CHROMIC CHLORIDE\CHROMIUM
  2. PALACOS R+G BONE CEMENT WITH GENTAMICIN [Suspect]
     Active Substance: DEVICE\GENTAMICIN
  3. EZETIMIBE 10MG [Concomitant]
     Active Substance: EZETIMIBE
  4. HYDROCODONE 10MG [Concomitant]
  5. CINNAMON. [Concomitant]
     Active Substance: CINNAMON
  6. CORTISONE [Suspect]
     Active Substance: CORTISONE
  7. LISINOPRIL 12.5 MG [Concomitant]
     Active Substance: LISINOPRIL

REACTIONS (7)
  - Pain in extremity [None]
  - Peripheral swelling [None]
  - Post procedural complication [None]
  - Device failure [None]
  - Orthopaedic procedure [None]
  - Skin discolouration [None]
  - Osteitis [None]

NARRATIVE: CASE EVENT DATE: 20170822
